FAERS Safety Report 18722585 (Version 1)
Quarter: 2021Q1

REPORT INFORMATION
  Report Type: Spontaneous
  Country: US (occurrence: US)
  Receive Date: 20210111
  Receipt Date: 20210111
  Transmission Date: 20210419
  Serious: No
  Sender: FDA-Public Use
  Company Number: US-009507513-2012USA013099

PATIENT
  Sex: Female

DRUGS (12)
  1. FOLLISTIM [Suspect]
     Active Substance: FOLLITROPIN
  2. ONDANSETRON [Concomitant]
     Active Substance: ONDANSETRON
  3. HYDROCHLOROT [Concomitant]
     Active Substance: HYDROCHLOROTHIAZIDE
  4. PREGNYL [Suspect]
     Active Substance: CHORIOGONADOTROPIN ALFA
     Dosage: DOSE: 10000 UNITS AS DIRECTED
     Route: 058
  5. PREDNISONE. [Concomitant]
     Active Substance: PREDNISONE
  6. ACETAMINOPHEN (+) OXYCODONE HYDROCHLORIDE [Concomitant]
     Active Substance: ACETAMINOPHEN\OXYCODONE HYDROCHLORIDE
  7. STERILE DILUENT (WATER) [Suspect]
     Active Substance: WATER
     Dosage: 1 MILLILITER
     Route: 058
  8. PRENATE [Concomitant]
  9. HYDROMORPHONE [Concomitant]
     Active Substance: HYDROMORPHONE
  10. LEUPROLIDE [Concomitant]
     Active Substance: LEUPROLIDE
  11. GANIRELIX ACETATE INJECTION [Concomitant]
     Active Substance: GANIRELIX ACETATE
  12. MENOPUR [Concomitant]
     Active Substance: FOLLITROPIN\LUTEINIZING HORMONE

REACTIONS (2)
  - Menstruation normal [Unknown]
  - Muscle spasms [Unknown]
